FAERS Safety Report 5431348-X (Version None)
Quarter: 2007Q3

REPORT INFORMATION
  Report Type: 
  Country: None (occurrence: None)
  Receive Date: 20070830
  Receipt Date: 20070713
  Transmission Date: 20080115
  Serious: No
  Sender: FDA-Public Use
  Company Number: A0649689A

PATIENT
  Age: 58 Year
  Sex: Female
  Weight: 69.5 kg

DRUGS (8)
  1. WELLBUTRIN XL [Suspect]
     Indication: PROPHYLAXIS
     Dosage: 300MG PER DAY
     Route: 048
     Dates: start: 20030730
  2. VERAPAMIL EXTENDED-RELEASE [Concomitant]
     Dosage: 240MG TWICE PER DAY
     Route: 048
  3. PROZAC [Concomitant]
     Dosage: 40MG PER DAY
     Route: 048
  4. METHADONE HCL [Concomitant]
     Dosage: 10MG THREE TIMES PER DAY
     Route: 048
  5. OSCAL [Concomitant]
     Dosage: 3TAB PER DAY
     Route: 048
  6. ZANTAC 150 [Concomitant]
     Dosage: 150MG AS REQUIRED
     Route: 048
  7. METHYLPHENIDATE HCL [Concomitant]
     Dosage: 5MG TWICE PER DAY
     Route: 048
  8. EVISTA [Concomitant]
     Dosage: 60MG PER DAY
     Route: 048

REACTIONS (2)
  - NAUSEA [None]
  - THERAPEUTIC RESPONSE UNEXPECTED [None]
